FAERS Safety Report 5521050-8 (Version None)
Quarter: 2007Q4

REPORT INFORMATION
  Report Type: 
  Country: None (occurrence: None)
  Receive Date: 20071119
  Receipt Date: 20071108
  Transmission Date: 20080405
  Serious: Yes (Other)
  Sender: FDA-Public Use
  Company Number: US-JNJFOC-20070803778

PATIENT
  Sex: Female
  Weight: 103.42 kg

DRUGS (20)
  1. FENTANYL TRANSDERMAL SYSTEM [Suspect]
     Indication: PAIN
     Route: 062
  2. TOPAMAX [Suspect]
     Route: 048
  3. TOPAMAX [Suspect]
     Indication: PAIN
     Route: 048
  4. ELAVIL [Concomitant]
     Route: 048
  5. ADDERALL 10 [Concomitant]
     Route: 048
  6. LORAZEPAM [Concomitant]
     Indication: ANXIETY
     Route: 048
  7. CYMBALTA [Concomitant]
     Indication: ANXIETY
     Route: 048
  8. FLUOXETINE [Concomitant]
     Indication: ANXIETY
     Route: 048
  9. SYNTHROID [Concomitant]
     Route: 048
  10. PHENERGAN HCL [Concomitant]
     Route: 048
  11. VIVELLE-DOT [Concomitant]
     Route: 062
  12. NORVASC [Concomitant]
     Indication: BLOOD PRESSURE
     Route: 048
  13. VALTREX [Concomitant]
     Route: 048
  14. CLARITIN [Concomitant]
     Indication: HYPERSENSITIVITY
     Route: 048
  15. SINGULAIR [Concomitant]
     Route: 048
  16. CARDURA [Concomitant]
     Indication: HYPERTENSION
     Route: 048
  17. NEXIUM [Concomitant]
     Indication: GASTROINTESTINAL DISORDER
     Route: 048
  18. PROVIGIL [Concomitant]
     Indication: SLEEP DISORDER
     Route: 048
  19. ALBUTEROL [Concomitant]
     Route: 055
  20. VITAMINS [Concomitant]
     Route: 048

REACTIONS (10)
  - APPLICATION SITE RASH [None]
  - BLOOD PRESSURE FLUCTUATION [None]
  - BLOOD TEST ABNORMAL [None]
  - DRUG ADMINISTERED AT INAPPROPRIATE SITE [None]
  - INAPPROPRIATE SCHEDULE OF DRUG ADMINISTRATION [None]
  - MEMORY IMPAIRMENT [None]
  - ONYCHOMYCOSIS [None]
  - PAIN [None]
  - PRURITUS GENERALISED [None]
  - WRONG TECHNIQUE IN DRUG USAGE PROCESS [None]
